FAERS Safety Report 10448001 (Version 1)
Quarter: 2014Q3

REPORT INFORMATION
  Report Type: Spontaneous
  Country: US (occurrence: US)
  Receive Date: 20140911
  Receipt Date: 20140911
  Transmission Date: 20150326
  Serious: Yes (Other)
  Sender: FDA-Public Use
  Company Number: US-BAYER-2014-133613

PATIENT
  Sex: Female

DRUGS (5)
  1. COPAXONE [Suspect]
     Active Substance: GLATIRAMER ACETATE
  2. AVONEX [Concomitant]
     Active Substance: INTERFERON BETA-1A
     Dosage: 30 ?G, OW
     Route: 030
     Dates: start: 20130811
  3. BETASERON [Suspect]
     Active Substance: INTERFERON BETA-1B
     Dosage: UNK
  4. AVONEX [Concomitant]
     Active Substance: INTERFERON BETA-1A
     Dosage: 30 ?G, OW
     Route: 030
     Dates: start: 20130701
  5. AVONEX [Concomitant]
     Active Substance: INTERFERON BETA-1A
     Dosage: 30 ?G, OW
     Route: 030
     Dates: start: 20100101

REACTIONS (1)
  - Neoplasm malignant [None]
